FAERS Safety Report 5520233-0 (Version None)
Quarter: 2007Q4

REPORT INFORMATION
  Report Type: 
  Country: None (occurrence: None)
  Receive Date: 20071116
  Receipt Date: 20071108
  Transmission Date: 20080405
  Serious: Yes (Hospitalization)
  Sender: FDA-Public Use
  Company Number: AU-MERCK-0711AUS00053

PATIENT
  Age: 61 Year
  Sex: Male
  Weight: 70 kg

DRUGS (1)
  1. PROSCAR [Suspect]
     Indication: PROSTATE CANCER
     Route: 048
     Dates: start: 20061228, end: 20070101

REACTIONS (4)
  - HYPOAESTHESIA [None]
  - OEDEMA PERIPHERAL [None]
  - RASH [None]
  - TONGUE OEDEMA [None]
